FAERS Safety Report 14895752 (Version 1)
Quarter: 2018Q2

REPORT INFORMATION
  Report Type: Spontaneous
  Country: US (occurrence: US)
  Receive Date: 20180515
  Receipt Date: 20180515
  Transmission Date: 20180711
  Serious: Yes (Other)
  Sender: FDA-Public Use
  Company Number: US-ROCHE-2121244

PATIENT

DRUGS (1)
  1. TECENTRIQ [Suspect]
     Active Substance: ATEZOLIZUMAB
     Indication: PANCOAST^S TUMOUR
     Route: 065

REACTIONS (2)
  - Eye inflammation [Recovered/Resolved]
  - Choroidal effusion [Recovering/Resolving]
